FAERS Safety Report 26214601 (Version 1)
Quarter: 2025Q4

REPORT INFORMATION
  Report Type: Report from Study
  Country: US (occurrence: US)
  Receive Date: 20251230
  Receipt Date: 20251230
  Transmission Date: 20260117
  Serious: Yes (Other)
  Sender: RHYTHM PHARMACEUTICALS
  Company Number: US-RHYTHM PHARMACEUTICALS, INC.-2025RHM000992

PATIENT

DRUGS (1)
  1. SETMELANOTIDE [Suspect]
     Active Substance: SETMELANOTIDE
     Indication: Laurence-Moon-Bardet-Biedl syndrome
     Dosage: 2.5 MILLIGRAM
     Route: 058

REACTIONS (1)
  - Skin cancer [Not Recovered/Not Resolved]
